FAERS Safety Report 11302009 (Version 1)
Quarter: 2015Q3

REPORT INFORMATION
  Report Type: Spontaneous
  Country: US (occurrence: None)
  Receive Date: 20150723
  Receipt Date: 20150723
  Transmission Date: 20151125
  Serious: Yes (Other)
  Sender: FDA-Public Use
  Company Number: None

PATIENT
  Age: 68 Year
  Sex: Female
  Weight: 63.96 kg

DRUGS (12)
  1. VITAMINS [Concomitant]
     Active Substance: VITAMINS
  2. C [Concomitant]
  3. FISH OIL [Concomitant]
     Active Substance: FISH OIL
  4. MULTIVITAMIN [Concomitant]
     Active Substance: VITAMINS
  5. CENTRUM SILVER [Concomitant]
     Active Substance: VITAMINS
  6. GLUCOSAMINE [Concomitant]
     Active Substance: GLUCOSAMINE
  7. ACYCLOVIR. [Concomitant]
     Active Substance: ACYCLOVIR
  8. MAGNESIUM [Concomitant]
     Active Substance: MAGNESIUM
  9. D3 [Concomitant]
     Active Substance: 25-HYDROXYCHOLECALCIFEROL, 5-TRANS-
  10. RAMIPRIL 10MG [Suspect]
     Active Substance: RAMIPRIL
  11. GARLIC. [Concomitant]
     Active Substance: GARLIC
  12. CHONDROITIN [Concomitant]
     Active Substance: CHONDROITIN

REACTIONS (22)
  - Hallucination [None]
  - Tinnitus [None]
  - Dizziness [None]
  - Hyperhidrosis [None]
  - Faeces discoloured [None]
  - Confusional state [None]
  - Pollakiuria [None]
  - Amnesia [None]
  - Pruritus [None]
  - Nausea [None]
  - Panic attack [None]
  - Nervousness [None]
  - Asthenia [None]
  - Disturbance in attention [None]
  - Mood altered [None]
  - Abdominal discomfort [None]
  - Insomnia [None]
  - Coordination abnormal [None]
  - Flatulence [None]
  - Decreased appetite [None]
  - Haematochezia [None]
  - Aggression [None]

NARRATIVE: CASE EVENT DATE: 20150615
